FAERS Safety Report 10332200 (Version 1)
Quarter: 2014Q3

REPORT INFORMATION
  Report Type: Spontaneous
  Country: JP (occurrence: None)
  Receive Date: 20140718
  Receipt Date: 20140718
  Transmission Date: 20150326
  Serious: Yes (Other)
  Sender: FDA-Public Use
  Company Number: 2014JP00797

PATIENT
  Age: 78 Year
  Sex: Male

DRUGS (3)
  1. EXTERNAL BEAM RADIOTHERAPY (EXTERNAL BEAM RADIOTHERAPY) [Suspect]
     Active Substance: RADIATION THERAPY
     Indication: PANCREATIC CARCINOMA STAGE IV
     Dosage: 2 GY/DAY IN 15 FRACTIONS
  2. GEMCITABINE (GEMCITABINE) INJECTION [Suspect]
     Active Substance: GEMCITABINE HYDROCHLORIDE
     Indication: PANCREATIC CARCINOMA STAGE IV
     Dosage: 300 MG/BODY WEIGHT, ONCE PER WEEK, INTRAVENOUS
     Route: 042
  3. TS-1 [Suspect]
     Active Substance: GIMERACIL\OTERACIL POTASSIUM\TEGAFUR
     Indication: PANCREATIC CARCINOMA STAGE IV
     Dosage: 80-100 MG/DAY FOR 28 DAYS, BID, ORAL
     Route: 048

REACTIONS (3)
  - Hepatic function abnormal [None]
  - Disease progression [None]
  - Renal impairment [None]
